FAERS Safety Report 7541229-3 (Version None)
Quarter: 2011Q2

REPORT INFORMATION
  Report Type: 
  Country: None (occurrence: None)
  Receive Date: 20110610
  Receipt Date: 20110607
  Transmission Date: 20111010
  Serious: Yes (Life-Threatening, Hospitalization, Disabling, Other)
  Sender: FDA-Public Use
  Company Number: US-MERCK-1009USA01140

PATIENT
  Age: 53 Year
  Sex: Male
  Weight: 160 kg

DRUGS (13)
  1. PROVENTIL [Concomitant]
     Route: 065
  2. CANCIDAS [Suspect]
     Route: 042
     Dates: start: 20100828
  3. FENTANYL [Concomitant]
     Route: 065
  4. CANCIDAS [Suspect]
     Indication: BACTERIAL INFECTION
     Route: 042
  5. BUMEX [Concomitant]
     Route: 065
  6. LOPRESSOR [Concomitant]
     Route: 065
  7. CANCIDAS [Suspect]
     Route: 042
     Dates: start: 20100828
  8. INSULIN [Concomitant]
     Route: 065
  9. VERSED [Concomitant]
     Route: 065
  10. TYLENOL-500 [Concomitant]
     Route: 065
  11. CANCIDAS [Suspect]
     Indication: SEPTIC SHOCK
     Route: 042
  12. PEPCID [Concomitant]
     Route: 048
  13. CHLORHEXIDINE GLUCONATE [Concomitant]
     Route: 065

REACTIONS (2)
  - DRUG INEFFECTIVE [None]
  - CULTURE POSITIVE [None]
